FAERS Safety Report 8333202 (Version 3)
Quarter: 2013Q3

REPORT INFORMATION
  Report Type: Spontaneous
  Country: US (occurrence: US)
  Receive Date: 20120112
  Receipt Date: 20130819
  Transmission Date: 20140515
  Serious: Yes (Other)
  Sender: FDA-Public Use
  Company Number: US-BRISTOL-MYERS SQUIBB COMPANY-16332017

PATIENT
  Age: 34 Year
  Sex: Female

DRUGS (5)
  1. REYATAZ [Suspect]
     Indication: HIV INFECTION
     Route: 048
     Dates: start: 20100426, end: 20100526
  2. TRUVADA [Suspect]
     Indication: HIV INFECTION
     Dosage: 1DF=1TABS;(300MG+200MG)
     Route: 048
     Dates: start: 20100426, end: 20100526
  3. COMBIVIR [Suspect]
     Indication: HIV INFECTION
     Dosage: 1DF=1 TABLET;150MG+300MG
     Route: 048
     Dates: start: 20100426, end: 20100526
  4. TOPAMAX [Concomitant]
     Indication: MIGRAINE
  5. MONODOX [Concomitant]
     Indication: ACNE

REACTIONS (10)
  - Impaired gastric emptying [Not Recovered/Not Resolved]
  - Gastrointestinal hypomotility [Not Recovered/Not Resolved]
  - Pelvic floor dyssynergia [Not Recovered/Not Resolved]
  - Cholecystitis [Unknown]
  - Jaundice [Unknown]
  - Myalgia [Unknown]
  - Anxiety [Unknown]
  - Depression [Unknown]
  - Palpitations [Unknown]
  - Paraesthesia [Unknown]
